FAERS Safety Report 5443166-7 (Version None)
Quarter: 2007Q3

REPORT INFORMATION
  Report Type: 
  Country: None (occurrence: None)
  Receive Date: 20070730
  Receipt Date: 20070409
  Transmission Date: 20080115
  Serious: Yes (Hospitalization)
  Sender: FDA-Public Use
  Company Number: 233876

PATIENT
  Age: 72 Year
  Sex: Female

DRUGS (9)
  1. RITUXAN [Suspect]
     Indication: SJOGREN'S SYNDROME
     Dosage: 604 MG, 1/WEEK, INTRAVENOUS
     Route: 042
     Dates: start: 20060927, end: 20061011
  2. TOPROL-XL [Concomitant]
  3. ZOCOR [Concomitant]
  4. PLAVIX [Concomitant]
  5. ASPIRIN [Concomitant]
  6. EVISTA [Concomitant]
  7. TYLENOL (CAPLET) [Concomitant]
  8. BENADRYL [Concomitant]
  9. SOLU-CORTEF [Concomitant]

REACTIONS (3)
  - RASH [None]
  - SERUM SICKNESS [None]
  - VASCULITIS [None]
